FAERS Safety Report 11864764 (Version 2)
Quarter: 2016Q1

REPORT INFORMATION
  Report Type: Report from Study
  Country: CN (occurrence: CN)
  Receive Date: 20151223
  Receipt Date: 20160122
  Transmission Date: 20160526
  Serious: Yes (Hospitalization)
  Sender: FDA-Public Use
  Company Number: CN-FERRINGPH-2015FE04841

PATIENT

DRUGS (12)
  1. VITAMIN C [Concomitant]
     Active Substance: ASCORBIC ACID
     Indication: VITAMIN C DEFICIENCY
     Dosage: UNK
     Route: 048
     Dates: start: 201307
  2. INSULIN ASPART [Concomitant]
     Active Substance: INSULIN ASPART
     Dosage: 18 U, QD, BEFORE THE MEAL
  3. NOVOLIN [Concomitant]
     Active Substance: INSULIN HUMAN
     Indication: TYPE 2 DIABETES MELLITUS
     Dosage: UNK
     Route: 058
     Dates: start: 2011
  4. UNSPECIFIED HERBAL AND TRADITIONAL MEDICINE [Concomitant]
     Indication: CHOLELITHIASIS
     Dosage: UNK
     Route: 048
     Dates: start: 20150204
  5. INSULIN GLARGINE [Concomitant]
     Active Substance: INSULIN GLARGINE
     Dosage: 20 U, QD
  6. GABAPENTIN. [Concomitant]
     Active Substance: GABAPENTIN
     Dosage: 1 TABLET/ EVERY TIME , TID
  7. FE 200486 [Suspect]
     Active Substance: DEGARELIX ACETATE
     Dosage: 80 MG, MONTHLY
     Route: 058
     Dates: start: 20150428, end: 20151111
  8. IBUPROFEN. [Concomitant]
     Active Substance: IBUPROFEN
     Dosage: 1 TABLET/ EVERY TIME , QD
  9. ATORVASTATIN [Concomitant]
     Active Substance: ATORVASTATIN
     Dosage: 1 TABLET/ EVERY TIME , QD
  10. FE 200486 [Suspect]
     Active Substance: DEGARELIX ACETATE
     Indication: PROSTATE CANCER
     Dosage: 240 MG, ONCE/SINGLE
     Route: 058
     Dates: start: 20150401, end: 20150401
  11. UNSPECIFIED HERBAL AND TRADITIONAL MEDICINE [Concomitant]
     Indication: HEPATIC FUNCTION ABNORMAL
     Dosage: UNK
     Route: 048
     Dates: start: 20150204
  12. ASPIRINE [Concomitant]
     Active Substance: ASPIRIN
     Dosage: 1 TABLET/ EVERY TIME , QD

REACTIONS (1)
  - Cerebral infarction [Recovered/Resolved]

NARRATIVE: CASE EVENT DATE: 20151204
